FAERS Safety Report 9722733 (Version 1)
Quarter: 2013Q4

REPORT INFORMATION
  Report Type: Spontaneous
  Country: US (occurrence: US)
  Receive Date: 20131202
  Receipt Date: 20131202
  Transmission Date: 20140711
  Serious: No
  Sender: FDA-Public Use
  Company Number: US-PFIZER INC-2013341318

PATIENT
  Age: 47 Year
  Sex: Male
  Weight: 74.83 kg

DRUGS (1)
  1. RELPAX [Suspect]
     Indication: MIGRAINE
     Dosage: 40 MG, AS NEEDED (12 TABLETS IN A MONTH)
     Route: 048

REACTIONS (1)
  - Drug ineffective [Unknown]
